FAERS Safety Report 10073767 (Version 2)
Quarter: 2014Q2

REPORT INFORMATION
  Report Type: Report from Study
  Country: US (occurrence: US)
  Receive Date: 20140411
  Receipt Date: 20140512
  Transmission Date: 20141212
  Serious: Yes (Hospitalization, Other)
  Sender: FDA-Public Use
  Company Number: US-BAXTER-2014BAX017037

PATIENT
  Age: 56 Year
  Sex: Female

DRUGS (31)
  1. GAMMAGARD LIQUID [Suspect]
     Indication: IMMUNODEFICIENCY COMMON VARIABLE
     Dosage: 6 DAYS PER WEEK
     Route: 058
     Dates: start: 20121015
  2. AMBIEN [Concomitant]
     Indication: PRODUCT USED FOR UNKNOWN INDICATION
     Route: 065
  3. METHOTREXATE SODIUM [Concomitant]
     Indication: PRODUCT USED FOR UNKNOWN INDICATION
     Dosage: 25 MG/ML SOLUTION
     Route: 030
  4. EVOXAC [Concomitant]
     Indication: PRODUCT USED FOR UNKNOWN INDICATION
     Route: 065
  5. DEXILANT [Concomitant]
     Indication: PRODUCT USED FOR UNKNOWN INDICATION
     Dosage: DELAYED-RELEASE
     Route: 065
  6. PROMETHAZINE HCL [Concomitant]
     Indication: NAUSEA
     Dosage: 1-2 TABLETS EVERY 4-6 HOURS AS NEEDED FOR NAUSEA
     Route: 065
  7. HYDROCODONE/ACETAMINOPHEN [Concomitant]
     Indication: PAIN
     Dosage: 1-5/325 MG TABLET EVERY 6 HOURS FOR PAIN
     Route: 065
  8. PLAQUENIL [Concomitant]
     Indication: PRODUCT USED FOR UNKNOWN INDICATION
     Dosage: 3-300 MG TABLETS TWO TIMES PER DAY
     Route: 065
  9. XANAX [Concomitant]
     Indication: PRODUCT USED FOR UNKNOWN INDICATION
     Route: 065
  10. PREDNISONE [Concomitant]
     Indication: PRODUCT USED FOR UNKNOWN INDICATION
     Dosage: 5-5 MG TABLETS DAILY
     Route: 065
  11. ASTEPRO [Concomitant]
     Indication: PRODUCT USED FOR UNKNOWN INDICATION
     Dosage: 0.15% SOLUTION, 2 SPRAYS EACH NOSTRIL ONCE DAILY
     Route: 045
  12. FLONASE [Concomitant]
     Indication: PRODUCT USED FOR UNKNOWN INDICATION
     Dosage: 0.05%, 2 SPRAYS EACH NOSTRIL TWICE DAILY (30 ML)
     Route: 045
  13. PULMICORT FLEXHALER [Concomitant]
     Indication: PRODUCT USED FOR UNKNOWN INDICATION
     Dosage: 180 MCG, 4 INHALATIONS TWICE DAILY AS DIRECTED
     Route: 055
  14. SINGULAIR [Concomitant]
     Indication: PRODUCT USED FOR UNKNOWN INDICATION
     Route: 065
  15. XOPENEX [Concomitant]
     Indication: PRODUCT USED FOR UNKNOWN INDICATION
     Dosage: 1.25 MG/3 ML NEBULIZER, 1 AMPOULE EVERY 4 HOURS
     Route: 055
  16. RELPAX [Concomitant]
     Indication: HEADACHE
     Dosage: TAKE 1 TABLET AT ONSET OF HEADACHE. MAY REPEAT IN 2 HOURS. MAXIMUM 2 TABLETS PER DAY.
     Route: 065
  17. PROLIA [Concomitant]
     Indication: PRODUCT USED FOR UNKNOWN INDICATION
     Dosage: SYRINGE
     Route: 065
  18. NIFEDIPINE ER [Concomitant]
     Indication: PRODUCT USED FOR UNKNOWN INDICATION
     Route: 065
  19. LANTUS [Concomitant]
     Indication: PRODUCT USED FOR UNKNOWN INDICATION
     Dosage: 45 UNITS/ML SOLUTION, 22 UNITS DAILY
     Route: 065
  20. CYCLOBENZAPRINE [Concomitant]
     Indication: PRODUCT USED FOR UNKNOWN INDICATION
     Route: 065
  21. HUMALOG [Concomitant]
     Indication: PRODUCT USED FOR UNKNOWN INDICATION
     Dosage: 100 UNITS/ML VIAL, 40 UNITS DAILY
     Route: 065
  22. REMICADE [Concomitant]
     Indication: PRODUCT USED FOR UNKNOWN INDICATION
     Dosage: 100 MG SOLUTION
     Route: 065
  23. METOPROLOL SUCCINATE ER [Concomitant]
     Indication: PRODUCT USED FOR UNKNOWN INDICATION
     Route: 065
  24. LBU TAB [Concomitant]
     Indication: PREMEDICATION
     Dosage: BEFORE GAMMAGARD LIQUID INFUSIONS
     Route: 065
  25. DIPHENHYDRAMINE HCL [Concomitant]
     Indication: PREMEDICATION
     Dosage: 2-25 MG CAPSULES BEFORE GAMMAGARD LIQUID INFUSION
     Route: 065
  26. EPIPEN [Concomitant]
     Indication: ANAPHYLAXIS PROPHYLAXIS
     Dosage: 0.3 MG, USE AS DIRECTED AND CALL 911
  27. FENTANYL [Concomitant]
     Indication: PRODUCT USED FOR UNKNOWN INDICATION
     Dosage: 100 MCG/HOUR PATCH, CHANGE EVERY 72 HOURS
     Route: 062
  28. FOLIC ACID [Concomitant]
     Indication: PRODUCT USED FOR UNKNOWN INDICATION
     Route: 065
  29. CARISOPRODOL [Concomitant]
     Indication: PRODUCT USED FOR UNKNOWN INDICATION
     Route: 065
  30. CYMBALTA [Concomitant]
     Indication: PRODUCT USED FOR UNKNOWN INDICATION
     Route: 065
  31. TRAZAMINE [Concomitant]
     Indication: PRODUCT USED FOR UNKNOWN INDICATION
     Route: 065

REACTIONS (4)
  - Cellulitis [Recovering/Resolving]
  - Incision site abscess [Recovering/Resolving]
  - Wound [Recovering/Resolving]
  - Fibromyalgia [Not Recovered/Not Resolved]
